FAERS Safety Report 6245246-5 (Version None)
Quarter: 2009Q2

REPORT INFORMATION
  Report Type: 
  Country: None (occurrence: None)
  Receive Date: 20090623
  Receipt Date: 20090623
  Transmission Date: 20091009
  Serious: Yes (Hospitalization, Disabling, Other)
  Sender: FDA-Public Use
  Company Number: None

PATIENT
  Age: 34 Year
  Sex: Female
  Weight: 78.9259 kg

DRUGS (1)
  1. GEODON [Suspect]
     Indication: PSYCHOTIC DISORDER
     Dosage: 160 MG ONCE DAILY PO
     Route: 048
     Dates: start: 20060410, end: 20090425

REACTIONS (4)
  - CONVULSION [None]
  - FALL [None]
  - MOUTH INJURY [None]
  - SYNCOPE [None]
